FAERS Safety Report 6302668-1 (Version None)
Quarter: 2009Q3

REPORT INFORMATION
  Report Type: 
  Country: None (occurrence: None)
  Receive Date: 20090810
  Receipt Date: 20090729
  Transmission Date: 20100115
  Serious: Yes (Hospitalization)
  Sender: FDA-Public Use
  Company Number: US-BAYER-200922494NA

PATIENT
  Age: 51 Year
  Sex: Female

DRUGS (13)
  1. CAMPATH [Suspect]
     Indication: MULTIPLE SCLEROSIS
     Dosage: TOTAL DAILY DOSE: 12 MG
     Route: 042
     Dates: start: 20090330, end: 20090403
  2. AMANTADINE HCL [Concomitant]
  3. ESTRADIOL [Concomitant]
  4. FIBERCON [Concomitant]
  5. LIDOCAINE [Concomitant]
     Dates: start: 20090501
  6. LISINOPRIL [Concomitant]
  7. BACLOFEN [Concomitant]
  8. PREVACID [Concomitant]
  9. CITALOPRAM [Concomitant]
  10. MINOCYCLINE [Concomitant]
  11. PROMETRIUM [Concomitant]
  12. TRIAMCINOLONE [Concomitant]
  13. ACYCLOVIR [Concomitant]
     Dates: start: 20090330, end: 20090426

REACTIONS (3)
  - FEBRILE NEUTROPENIA [None]
  - GAIT DISTURBANCE [None]
  - OROPHARYNGEAL BLISTERING [None]
